FAERS Safety Report 7801729-5 (Version None)
Quarter: 2011Q4

REPORT INFORMATION
  Report Type: 
  Country: None (occurrence: None)
  Receive Date: 20111004
  Receipt Date: 20100825
  Transmission Date: 20120403
  Serious: Yes (Hospitalization, Other)
  Sender: FDA-Public Use
  Company Number: 2010GW000498

PATIENT
  Sex: Male
  Weight: 71.3962 kg

DRUGS (17)
  1. ADVAIR DISKUS 100/50 [Concomitant]
  2. ASPIRIN [Concomitant]
  3. CORTICOSTEROIDS [Concomitant]
  4. PULMICORT [Concomitant]
  5. SEROQUEL [Concomitant]
  6. LISINOPRIL [Concomitant]
  7. LORAZEPAM [Concomitant]
  8. OXYCODONE HCL [Concomitant]
  9. INTAL [Concomitant]
  10. ALBUTEROL [Concomitant]
  11. CALCIUM +VIT D [Concomitant]
  12. MAXAIR [Suspect]
     Indication: ASTHMA
     Dosage: 400 UG;QD;INH
     Route: 055
     Dates: start: 20020201
  13. MAXAIR [Suspect]
     Indication: CHRONIC OBSTRUCTIVE PULMONARY DISEASE
     Dosage: 400 UG;QD;INH
     Route: 055
     Dates: start: 20020201
  14. SPIRIVA [Concomitant]
  15. PLAVIX [Concomitant]
  16. SIMVASTATIN [Concomitant]
  17. FISH OIL [Concomitant]

REACTIONS (35)
  - OSTEOPENIA [None]
  - CHEST PAIN [None]
  - COMPRESSION FRACTURE [None]
  - SOCIAL AVOIDANT BEHAVIOUR [None]
  - MYOCARDIAL INFARCTION [None]
  - BONE PAIN [None]
  - TRAUMATIC FRACTURE [None]
  - COUGH [None]
  - SNEEZING [None]
  - RETCHING [None]
  - RASH ERYTHEMATOUS [None]
  - RASH VESICULAR [None]
  - GASTROENTERITIS VIRAL [None]
  - SUPRAVENTRICULAR TACHYCARDIA [None]
  - HYPOPHAGIA [None]
  - HEAD INJURY [None]
  - OSTEONECROSIS [None]
  - SWOLLEN TONGUE [None]
  - PRESYNCOPE [None]
  - BLOOD CREATININE INCREASED [None]
  - ASTHMA [None]
  - TENDERNESS [None]
  - CHEST DISCOMFORT [None]
  - OSTEOPOROSIS [None]
  - FATIGUE [None]
  - ATRIAL FLUTTER [None]
  - NAUSEA [None]
  - MENTAL STATUS CHANGES [None]
  - HYPOAESTHESIA [None]
  - PNEUMONIA [None]
  - SINUS TACHYCARDIA [None]
  - FALL [None]
  - INFUSION SITE REACTION [None]
  - VOMITING [None]
  - CHRONIC OBSTRUCTIVE PULMONARY DISEASE [None]
